FAERS Safety Report 20568472 (Version 2)
Quarter: 2022Q1

REPORT INFORMATION
  Report Type: Other
  Country: US (occurrence: None)
  Receive Date: 20220308
  Receipt Date: 20220317
  Transmission Date: 20220423
  Serious: Yes (Other)
  Sender: FDA-Public Use
  Company Number: US-ROCHE-3039088

PATIENT
  Sex: Female
  Weight: 106.69 kg

DRUGS (11)
  1. OCREVUS [Suspect]
     Active Substance: OCRELIZUMAB
     Indication: Relapsing-remitting multiple sclerosis
     Dosage: (PRESCRIBED 300 MG IV)?DATE OF TREATMENT: 03/JUN/2020, 17/JUN/2020, 17/DEC/2020, 21/JUL/2021
     Route: 065
     Dates: start: 20200603
  2. SERTRALINE [Concomitant]
     Active Substance: SERTRALINE HYDROCHLORIDE
  3. CETIRIZINE [Concomitant]
     Active Substance: CETIRIZINE HYDROCHLORIDE
  4. ONDANSETRON [Concomitant]
     Active Substance: ONDANSETRON
  5. ESOMEPRAZOLE [Concomitant]
     Active Substance: ESOMEPRAZOLE
  6. DALFAMPRIDINE [Concomitant]
     Active Substance: DALFAMPRIDINE
  7. CIPROFLOXACIN [Concomitant]
     Active Substance: CIPROFLOXACIN
  8. FLUTICASONE [Concomitant]
     Active Substance: FLUTICASONE
  9. TIZANIDINE [Concomitant]
     Active Substance: TIZANIDINE
  10. LOPERAMIDE [Concomitant]
     Active Substance: LOPERAMIDE
  11. AZELASTINE [Concomitant]
     Active Substance: AZELASTINE

REACTIONS (2)
  - Urinary tract infection [Recovered/Resolved]
  - Urinary retention [Unknown]
